FAERS Safety Report 25319780 (Version 1)
Quarter: 2025Q2

REPORT INFORMATION
  Report Type: Spontaneous
  Country: CN (occurrence: CN)
  Receive Date: 20250515
  Receipt Date: 20250515
  Transmission Date: 20250717
  Serious: Yes (Life-Threatening, Hospitalization)
  Sender: ELI LILLY AND COMPANY
  Company Number: CN-ELI_LILLY_AND_COMPANY-CN202505009839

PATIENT
  Age: 61 Year
  Sex: Male
  Weight: 64 kg

DRUGS (6)
  1. HUMALOG MIX50/50 [Suspect]
     Active Substance: INSULIN LISPRO
     Indication: Chronic kidney disease
     Dosage: 18 INTERNATIONAL UNIT, EACH MORNING
     Route: 058
     Dates: start: 20250313, end: 20250406
  2. HUMALOG MIX50/50 [Suspect]
     Active Substance: INSULIN LISPRO
     Indication: Diabetes mellitus
     Dosage: 18 INTERNATIONAL UNIT, EACH MORNING
     Route: 058
     Dates: start: 20250313, end: 20250406
  3. HUMALOG MIX50/50 [Suspect]
     Active Substance: INSULIN LISPRO
     Dosage: 10 INTERNATIONAL UNIT, EACH EVENING
     Route: 058
     Dates: start: 20250313, end: 20250406
  4. HUMALOG MIX50/50 [Suspect]
     Active Substance: INSULIN LISPRO
     Dosage: 10 INTERNATIONAL UNIT, EACH EVENING
     Route: 058
     Dates: start: 20250313, end: 20250406
  5. REPAGLINIDE [Concomitant]
     Active Substance: REPAGLINIDE
     Indication: Chronic kidney disease
     Dosage: 1 MG, DAILY
     Route: 048
     Dates: start: 20250313, end: 20250406
  6. VOGLIBOSE [Concomitant]
     Active Substance: VOGLIBOSE
     Indication: Blood glucose decreased

REACTIONS (3)
  - Hypertension [Recovered/Resolved]
  - Hypoglycaemic coma [Recovered/Resolved]
  - Stress [Unknown]

NARRATIVE: CASE EVENT DATE: 20250406
